FAERS Safety Report 22122440 (Version 1)
Quarter: 2023Q1

REPORT INFORMATION
  Report Type: Spontaneous
  Country: FR (occurrence: FR)
  Receive Date: 20230321
  Receipt Date: 20230321
  Transmission Date: 20230418
  Serious: Yes (Death)
  Sender: FDA-Public Use
  Company Number: None

PATIENT
  Age: 27 Year
  Sex: Male
  Weight: 81 kg

DRUGS (2)
  1. CLOZAPINE [Suspect]
     Active Substance: CLOZAPINE
     Indication: Schizophrenia
     Dosage: 3 DOSAGE FORM, QD (1 TABLET OF IN THE MORNING AND)
     Route: 048
     Dates: start: 20220608, end: 20220616
  2. CYAMEMAZINE [Suspect]
     Active Substance: CYAMEMAZINE
     Indication: Schizophrenia
     Dosage: UNK (50 DROPS MORNING, 75 DROPS IN THE MORNING)
     Route: 048
     Dates: start: 20220608, end: 20220616

REACTIONS (1)
  - Death [Fatal]

NARRATIVE: CASE EVENT DATE: 20220616
